FAERS Safety Report 7038981-2 (Version None)
Quarter: 2010Q4

REPORT INFORMATION
  Report Type: 
  Country: None (occurrence: None)
  Receive Date: 20101012
  Receipt Date: 20100930
  Transmission Date: 20110411
  Serious: Yes (Other)
  Sender: FDA-Public Use
  Company Number: CA-JNJFOC-20100900135

PATIENT
  Sex: Male

DRUGS (7)
  1. SIMPONI [Suspect]
     Indication: ANKYLOSING SPONDYLITIS
     Route: 058
  2. SIMPONI [Suspect]
     Route: 058
  3. FENTANYL-75 [Concomitant]
     Indication: PAIN MANAGEMENT
     Route: 062
  4. PERINDOPRIL ERBUMINE [Concomitant]
     Indication: HYPERTENSION
  5. DEMEROL [Concomitant]
     Indication: PAIN
     Route: 048
  6. PRILOSEC [Concomitant]
     Indication: GASTROOESOPHAGEAL REFLUX DISEASE
     Route: 048
  7. LORAZEPAM [Concomitant]
     Indication: SLEEP DISORDER

REACTIONS (4)
  - CHEST DISCOMFORT [None]
  - DYSPNOEA [None]
  - LOWER RESPIRATORY TRACT INFECTION [None]
  - NASOPHARYNGITIS [None]
